FAERS Safety Report 9536462 (Version 1)
Quarter: 2013Q2

REPORT INFORMATION
  Report Type: Spontaneous
  Country: US (occurrence: None)
  Receive Date: 20130507
  Receipt Date: 20130507
  Transmission Date: 20140414
  Serious: Yes (Other)
  Sender: FDA-Public Use
  Company Number: PHEH2012US025055

PATIENT
  Age: 74 Year
  Sex: Male
  Weight: 86.2 kg

DRUGS (28)
  1. AFINITOR (RAD) [Suspect]
     Indication: RENAL CELL CARCINOMA
     Route: 048
     Dates: start: 20090527, end: 20121010
  2. BACTRIM DS (SULFAMETHOXAZOLE, TRIMETHOPRIM) [Concomitant]
  3. CIPRO (CIPROFLOXACIN HYDROCHLORIDE) [Concomitant]
  4. NIFEREX-150 FORTE (CYANOCOBALAMIN, FOLIC ACID, POLYSACCHARIDE-IRON COMPLEX) [Concomitant]
  5. SPIRONOLACTONE (SPIRONOLACTONE) [Concomitant]
  6. ZITHROMAX Z-PAK (AZITHROMYCIN) [Concomitant]
  7. AMLODIPINE BESYLATE (AMLODIPINE BESILATE) [Concomitant]
  8. CALCITROL (CALCIUM CARBONATE, ERGOCALCIFEROL, RETINOL) [Concomitant]
  9. COREG (CARVEDILOL) [Concomitant]
  10. FERROUS SULFATE (FERROUS SULFATE) [Concomitant]
  11. FISH OIL [Concomitant]
  12. FOLIC ACID [Concomitant]
  13. LASIX (FUROSEMIDE) [Concomitant]
  14. LOPID (GEMFIBROZIL) [Concomitant]
  15. MULTIVITAMINS (ASCORBIC ACID, ERGOCALCIFEROL, FOLIC ACID, NICOTINAMIDE, PANTENOL, RETINOL, RIBOFLAVIN, THIAMINE HYDROCHLORIDE) [Concomitant]
  16. NASONEX (MOMETASONE FUROATE) [Concomitant]
  17. NOVOLIN (INSULIN HUMAN, INSULIN HUMAN INJECTION, ISOPHANE) [Concomitant]
  18. PRAVACHOL (PRAVASTATIN SODIUM) [Concomitant]
  19. ACETAMINOPHEN (PARACETAMOL) [Concomitant]
  20. AUGMENTIN (AMOXICILLIN SODIUM, CLAVULANATE POTASSIUM) [Concomitant]
  21. DARBEPOETIN ALFA (DARBEPOETIN ALFA) [Concomitant]
  22. DIPHENHYDRAMINE HCL (DIPHENHYDRAMINE HYDROCHLORIDE) [Concomitant]
  23. FLUZONE (INFLUENZA VIRUS VACCINE POLYVALENT) [Concomitant]
  24. IRON DEXTRAN [Concomitant]
  25. MAGIC MOUTHWASH (DIPHENHYDRAMINE HYDROCHLORIDE, HYDROCORTISONE, NYSTATIN) [Concomitant]
  26. NORMAL SALINE (SODIUM CHLORIDE) [Concomitant]
  27. ROCEPHIN (CEFTRIAXONE SODIUM) [Concomitant]
  28. SOLU-MEDROL (METHYLPREDNISOLONE SODIUM SUCCINATE) [Concomitant]

REACTIONS (5)
  - Pneumonitis [None]
  - Cough [None]
  - Oedema peripheral [None]
  - Fatigue [None]
  - Malaise [None]
